FAERS Safety Report 6874958-5 (Version None)
Quarter: 2010Q2

REPORT INFORMATION
  Report Type: 
  Country: None (occurrence: None)
  Receive Date: 20100616
  Receipt Date: 20090828
  Transmission Date: 20101027
  Serious: Yes (Hospitalization)
  Sender: FDA-Public Use
  Company Number: 1000008529

PATIENT
  Age: 85 Year
  Sex: Male

DRUGS (1)
  1. NAMENDA [Suspect]
     Dosage: 10 (10 ,1 IN 1 D),ORAL
     Route: 048

REACTIONS (1)
  - HYPONATRAEMIA [None]
